FAERS Safety Report 24662039 (Version 2)
Quarter: 2025Q1

REPORT INFORMATION
  Report Type: Report from Study
  Country: DE (occurrence: DE)
  Receive Date: 20241125
  Receipt Date: 20250204
  Transmission Date: 20250409
  Serious: Yes (Hospitalization)
  Sender: ABBVIE
  Company Number: DE-ABBVIE-6019810

PATIENT
  Age: 76 Year
  Sex: Male

DRUGS (2)
  1. FOSCARBIDOPA\FOSLEVODOPA [Suspect]
     Active Substance: FOSCARBIDOPA\FOSLEVODOPA
     Indication: Parkinson^s disease
     Route: 058
     Dates: start: 20240117
  2. FOSCARBIDOPA\FOSLEVODOPA [Suspect]
     Active Substance: FOSCARBIDOPA\FOSLEVODOPA
     Route: 058

REACTIONS (10)
  - Pyrexia [Recovering/Resolving]
  - Infusion site inflammation [Recovering/Resolving]
  - Infusion site infection [Unknown]
  - Hypokinesia [Unknown]
  - Fatigue [Unknown]
  - Infusion site abscess [Recovering/Resolving]
  - Infusion site pain [Unknown]
  - Palmar erythema [Unknown]
  - Device issue [Unknown]
  - Panic reaction [Unknown]

NARRATIVE: CASE EVENT DATE: 20240101
